FAERS Safety Report 8427154-4 (Version None)
Quarter: 2012Q2

REPORT INFORMATION
  Report Type: 
  Country: None (occurrence: None)
  Receive Date: 20120531
  Receipt Date: 20120522
  Transmission Date: 20120825
  Serious: Yes (Other)
  Sender: FDA-Public Use
  Company Number: 2012SP022699

PATIENT
  Sex: Male

DRUGS (3)
  1. RIBAVIRIN [Suspect]
     Indication: HEPATITIS C
     Dates: start: 20120424
  2. VICTRELIS [Suspect]
     Indication: HEPATITIS C
     Dates: start: 20120522
  3. PEG-INTRON [Suspect]
     Indication: HEPATITIS C
     Dates: start: 20120424

REACTIONS (6)
  - PRODUCT QUALITY ISSUE [None]
  - MALAISE [None]
  - INCORRECT DOSE ADMINISTERED [None]
  - INJECTION SITE ERYTHEMA [None]
  - OVERDOSE [None]
  - INFLUENZA LIKE ILLNESS [None]
